FAERS Safety Report 17229691 (Version 1)
Quarter: 2020Q1

REPORT INFORMATION
  Report Type: Spontaneous
  Country: CN (occurrence: CN)
  Receive Date: 20200103
  Receipt Date: 20200103
  Transmission Date: 20200409
  Serious: Yes (Hospitalization)
  Sender: FDA-Public Use
  Company Number: CN-PFIZER INC-2019560357

PATIENT
  Age: 18 Year
  Sex: Male
  Weight: 63 kg

DRUGS (2)
  1. SODIUM CHLORIDE. [Concomitant]
     Active Substance: SODIUM CHLORIDE
     Indication: VEHICLE SOLUTION USE
     Dosage: 100.000 UL, 1X/DAY
     Route: 041
     Dates: start: 20191127, end: 20191217
  2. PIPERACILLIN/TAZOBACTAM [Suspect]
     Active Substance: PIPERACILLIN SODIUM\TAZOBACTAM SODIUM
     Indication: ABSCESS LIMB
     Dosage: 4.500 G, 3X/DAY
     Route: 041
     Dates: start: 20191127, end: 20191217

REACTIONS (8)
  - Discomfort [Unknown]
  - Pyrexia [Recovering/Resolving]
  - Asthenia [Unknown]
  - Temperature intolerance [Unknown]
  - Chills [Unknown]
  - White blood cell count decreased [Recovering/Resolving]
  - Liver injury [Recovering/Resolving]
  - Dizziness [Unknown]

NARRATIVE: CASE EVENT DATE: 20191213
